FAERS Safety Report 25137157 (Version 1)
Quarter: 2025Q1

REPORT INFORMATION
  Report Type: Report from Study
  Country: JP (occurrence: JP)
  Receive Date: 20250329
  Receipt Date: 20250329
  Transmission Date: 20250408
  Serious: Yes (Death, Other)
  Sender: ABBVIE
  Company Number: JP-TAKEDA-2025TJP003139

PATIENT
  Age: 62 Year
  Sex: Male
  Weight: 71 kg

DRUGS (12)
  1. LEUPROLIDE ACETATE [Suspect]
     Active Substance: LEUPROLIDE ACETATE
     Indication: Bulbospinal muscular atrophy congenital
     Dosage: 11.25 MILLIGRAM, Q3MONTHS
     Route: 065
     Dates: start: 20230111, end: 20240703
  2. HERBESSER [Concomitant]
     Active Substance: DILTIAZEM HYDROCHLORIDE
     Indication: Arrhythmia
     Route: 065
  3. CARVEDILOL [Concomitant]
     Active Substance: CARVEDILOL
     Indication: Cardiac failure
     Route: 065
  4. RABEPRAZOLE SODIUM [Concomitant]
     Active Substance: RABEPRAZOLE SODIUM
     Indication: Gastric ulcer
     Route: 065
  5. DABIGATRAN ETEXILATE MESYLATE [Concomitant]
     Active Substance: DABIGATRAN ETEXILATE MESYLATE
     Indication: Atrial fibrillation
     Route: 065
  6. SPIRONOLACTONE [Concomitant]
     Active Substance: SPIRONOLACTONE
     Indication: Cardiac failure
     Route: 065
  7. SARPOGRELATE [Concomitant]
     Active Substance: SARPOGRELATE
     Indication: Peripheral arterial occlusive disease
     Route: 065
  8. METHYLCOBALAMIN [Concomitant]
     Active Substance: METHYLCOBALAMIN
     Indication: Vitamin B12 deficiency
     Route: 065
  9. NICORANDIL [Concomitant]
     Active Substance: NICORANDIL
     Indication: Myocardial ischaemia
     Route: 065
  10. AMBROXOL HYDROCHLORIDE [Concomitant]
     Active Substance: AMBROXOL HYDROCHLORIDE
     Indication: Bronchitis
     Route: 065
  11. SAMSCA [Concomitant]
     Active Substance: TOLVAPTAN
     Indication: Cardiac failure
     Route: 065
  12. AMIODARONE HYDROCHLORIDE [Concomitant]
     Active Substance: AMIODARONE HYDROCHLORIDE
     Indication: Ventricular arrhythmia
     Route: 065

REACTIONS (1)
  - Death [Fatal]

NARRATIVE: CASE EVENT DATE: 20240801
